FAERS Safety Report 24459954 (Version 1)
Quarter: 2024Q4

REPORT INFORMATION
  Report Type: Report from Study
  Country: CA (occurrence: CA)
  Receive Date: 20241018
  Receipt Date: 20241018
  Transmission Date: 20250115
  Serious: No
  Sender: ROCHE
  Company Number: CA-ROCHE-3568819

PATIENT
  Sex: Male
  Weight: 56.7 kg

DRUGS (21)
  1. RITUXAN [Suspect]
     Active Substance: RITUXIMAB
     Indication: Immunoglobulin G4 related disease
     Dosage: FREQUENCY TEXT:DAY 1, DAY 15
     Route: 041
     Dates: start: 20170418, end: 20171115
  2. RITUXAN [Suspect]
     Active Substance: RITUXIMAB
     Indication: Aortitis
     Dosage: SINGLE INFUSION
     Route: 042
     Dates: start: 20180713, end: 20180713
  3. RITUXAN [Suspect]
     Active Substance: RITUXIMAB
     Dosage: SINGLE INFUSION
     Route: 042
     Dates: start: 20190307, end: 20190307
  4. RITUXAN [Suspect]
     Active Substance: RITUXIMAB
     Dosage: SINGLE INFUSION
     Route: 042
     Dates: start: 20190916, end: 20190916
  5. RITUXAN [Suspect]
     Active Substance: RITUXIMAB
     Dosage: SINGLE INFUSION
     Route: 042
     Dates: start: 20210528, end: 20210528
  6. RITUXAN [Suspect]
     Active Substance: RITUXIMAB
     Dosage: SINGLE INFUSION.
     Route: 042
     Dates: start: 20220609, end: 20220609
  7. RITUXAN [Suspect]
     Active Substance: RITUXIMAB
     Dosage: SINGLE INFUSION.
     Route: 042
     Dates: start: 20230221, end: 20230221
  8. RITUXAN [Suspect]
     Active Substance: RITUXIMAB
     Dosage: SINGLE INFUSION.
     Route: 042
     Dates: start: 20231101
  9. ASPIRIN [Concomitant]
     Active Substance: ASPIRIN
  10. ALLOPURINOL [Concomitant]
     Active Substance: ALLOPURINOL
  11. BISOPROLOL [Concomitant]
     Active Substance: BISOPROLOL\BISOPROLOL FUMARATE
  12. PERINDOPRIL [Concomitant]
     Active Substance: PERINDOPRIL
  13. ENTRESTO [Concomitant]
     Active Substance: SACUBITRIL\VALSARTAN
  14. EZETIMIBE [Concomitant]
     Active Substance: EZETIMIBE
  15. FUROSEMIDE [Concomitant]
     Active Substance: FUROSEMIDE
  16. JARDIANCE [Concomitant]
     Active Substance: EMPAGLIFLOZIN
  17. PANTOPRAZOLE [Concomitant]
     Active Substance: PANTOPRAZOLE
  18. PREDNISONE [Concomitant]
     Active Substance: PREDNISONE
  19. PROLIA [Concomitant]
     Active Substance: DENOSUMAB
  20. RABEPRAZOLE [Concomitant]
     Active Substance: RABEPRAZOLE
  21. ROSUVASTATIN [Concomitant]
     Active Substance: ROSUVASTATIN

REACTIONS (2)
  - Arthralgia [Recovering/Resolving]
  - Weight decreased [Unknown]
